FAERS Safety Report 15489260 (Version 1)
Quarter: 2018Q4

REPORT INFORMATION
  Report Type: Spontaneous
  Country: US (occurrence: US)
  Receive Date: 20181011
  Receipt Date: 20181011
  Transmission Date: 20190205
  Serious: No
  Sender: FDA-Public Use
  Company Number: US-AMNEAL PHARMACEUTICALS-2018AMN00491

PATIENT
  Weight: 32.88 kg

DRUGS (10)
  1. VIGABATRIN. [Suspect]
     Active Substance: VIGABATRIN
     Indication: INFANTILE SPASMS
     Dosage: 1 UNK, 6X/DAY
     Route: 048
  2. PREVACID [Concomitant]
     Active Substance: LANSOPRAZOLE
     Dosage: UNK
     Route: 065
  3. POLY-VI-SOL WITH IRON [Concomitant]
     Active Substance: IRON\VITAMINS
     Dosage: UNK
     Route: 065
  4. CARNITOR [Concomitant]
     Active Substance: LEVOCARNITINE
     Dosage: UNK
     Route: 065
  5. DIAZEPAM. [Concomitant]
     Active Substance: DIAZEPAM
     Dosage: UNK
     Route: 065
  6. VIMPAT [Concomitant]
     Active Substance: LACOSAMIDE
     Dosage: UNK
     Route: 065
  7. DIASTAT [Concomitant]
     Active Substance: DIAZEPAM
     Dosage: UNK
     Route: 065
  8. DEPAKENE [Concomitant]
     Active Substance: VALPROIC ACID
     Dosage: UNK
     Route: 065
  9. TOPAMAX [Concomitant]
     Active Substance: TOPIRAMATE
     Dosage: UNK
     Route: 065
  10. VIGABATRIN. [Suspect]
     Active Substance: VIGABATRIN
     Dosage: 1 UNK, 4X/DAY

REACTIONS (3)
  - Vomiting [Unknown]
  - Malaise [Unknown]
  - Nausea [Unknown]
